FAERS Safety Report 4865172-3 (Version None)
Quarter: 2005Q4

REPORT INFORMATION
  Report Type: 
  Country: None (occurrence: None)
  Receive Date: 20051223
  Receipt Date: 20050815
  Transmission Date: 20060501
  Serious: Yes (Life-Threatening, Hospitalization)
  Sender: FDA-Public Use
  Company Number: BR-GLAXOSMITHKLINE-A0571738A

PATIENT
  Age: 70 Year
  Sex: Male
  Weight: 68 kg

DRUGS (6)
  1. AVODART [Suspect]
     Dosage: .5MG PER DAY
     Route: 048
     Dates: start: 20050814
  2. ANGIPRESS [Concomitant]
     Dates: start: 20000814
  3. LANSOPRAZOL [Concomitant]
     Dates: start: 20050725
  4. SIMVASTATINA [Concomitant]
     Dates: start: 20050711
  5. MONOCORDIL [Concomitant]
  6. ASPIRINA [Concomitant]

REACTIONS (3)
  - ASTHENIA [None]
  - DIZZINESS [None]
  - POLYURIA [None]
